FAERS Safety Report 4355534-5 (Version None)
Quarter: 2004Q2

REPORT INFORMATION
  Report Type: 
  Country: None (occurrence: None)
  Receive Date: 20040503
  Receipt Date: 20030620
  Transmission Date: 20050107
  Serious: Yes (Life-Threatening)
  Sender: FDA-Public Use
  Company Number: US-SHR-03-010170

PATIENT

DRUGS (1)
  1. REFLUDAN [Suspect]

REACTIONS (1)
  - HAEMORRHAGE [None]
